FAERS Safety Report 9207919 (Version 2)
Quarter: 2013Q2

REPORT INFORMATION
  Report Type: Spontaneous
  Country: GB (occurrence: GB)
  Receive Date: 20130403
  Receipt Date: 20130424
  Transmission Date: 20140414
  Serious: Yes (Death, Hospitalization)
  Sender: FDA-Public Use
  Company Number: GB-BRISTOL-MYERS SQUIBB COMPANY-18722140

PATIENT
  Age: 66 Year
  Sex: Male

DRUGS (1)
  1. YERVOY [Suspect]
     Indication: METASTATIC MALIGNANT MELANOMA
     Dosage: 2 DOSE?CYCLE 1: 11JAN203?CYCLE 2: 04FEB2013?CYCLE 3 INTERRUPTED ON 25FEB2013?3MG/KG (290MG)
     Route: 042
     Dates: start: 20130111, end: 20130204

REACTIONS (4)
  - Enterocolitis [Fatal]
  - Large intestine perforation [Fatal]
  - Sepsis [Fatal]
  - Acute respiratory distress syndrome [Fatal]
